FAERS Safety Report 7524857-0 (Version None)
Quarter: 2011Q2

REPORT INFORMATION
  Report Type: 
  Country: None (occurrence: None)
  Receive Date: 20110606
  Receipt Date: 20110531
  Transmission Date: 20111010
  Serious: Yes (Other)
  Sender: FDA-Public Use
  Company Number: CA-PFIZER INC-2011116301

PATIENT
  Sex: Male

DRUGS (4)
  1. EMTEC-30 [Concomitant]
     Indication: BONE PAIN
     Dosage: UNK
  2. LYRICA [Suspect]
     Indication: NEURALGIA
     Dosage: 75 MG, 1-2 TABLETS AT BEDTIME
     Route: 048
     Dates: start: 20110514, end: 20110521
  3. HYDROXYZINE [Concomitant]
     Indication: PRURITUS
     Dosage: UNK
  4. ZOPICLONE [Concomitant]
     Indication: INSOMNIA
     Dosage: UNK

REACTIONS (3)
  - EYELID OEDEMA [None]
  - OEDEMA PERIPHERAL [None]
  - GENERALISED OEDEMA [None]
